FAERS Safety Report 9152285 (Version 1)
Quarter: 2013Q1

REPORT INFORMATION
  Report Type: Spontaneous
  Country: US (occurrence: US)
  Receive Date: 20130308
  Receipt Date: 20130308
  Transmission Date: 20140127
  Serious: No
  Sender: FDA-Public Use
  Company Number: US-ASTRAZENECA-2013SE12624

PATIENT
  Age: 66 Year
  Sex: Female

DRUGS (2)
  1. ZESTRIL [Suspect]
     Route: 048
  2. LOSARTAN [Suspect]
     Route: 065

REACTIONS (5)
  - Adverse event [Unknown]
  - Blood pressure decreased [Unknown]
  - Dizziness [Unknown]
  - Dizziness [Unknown]
  - Abdominal discomfort [Unknown]
